FAERS Safety Report 10908473 (Version 1)
Quarter: 2015Q1

REPORT INFORMATION
  Report Type: Spontaneous
  Country: IN (occurrence: IN)
  Receive Date: 20150312
  Receipt Date: 20150312
  Transmission Date: 20150721
  Serious: Yes (Other)
  Sender: FDA-Public Use
  Company Number: IN-BAXTER-2015BAX012139

PATIENT
  Age: 60 Year
  Sex: Male
  Weight: 60 kg

DRUGS (10)
  1. ISOFLURANE USP (AERRANE) 100ML, 250ML GLASS BOTTLES - INHALATION ANAES [Suspect]
     Active Substance: ISOFLURANE
     Indication: MAINTENANCE OF ANAESTHESIA
     Dosage: 0.6%-0.8%
     Route: 055
  2. PENTAZOCINE [Suspect]
     Active Substance: PENTAZOCINE
     Indication: PREMEDICATION
     Dosage: PER BODY WEIGHT
     Route: 042
  3. ONDANSETRON [Suspect]
     Active Substance: ONDANSETRON
     Indication: PREMEDICATION
     Route: 042
  4. PROPOFOL. [Suspect]
     Active Substance: PROPOFOL
     Indication: INDUCTION OF ANAESTHESIA
     Dosage: PER BODY WEIGHT
     Route: 065
  5. ATRACURIUM [Suspect]
     Active Substance: ATRACURIUM
     Indication: MAINTENANCE OF ANAESTHESIA
     Dosage: INCREMENTAL DOSES WHEN NEEDED
     Route: 055
  6. NITROUS OXIDE. [Suspect]
     Active Substance: NITROUS OXIDE
     Indication: MAINTENANCE OF ANAESTHESIA
     Dosage: 67%
     Route: 055
  7. MIDAZOLAM [Suspect]
     Active Substance: MIDAZOLAM\MIDAZOLAM HYDROCHLORIDE
     Indication: PREMEDICATION
     Dosage: PER BODY WEIGHT
     Route: 042
  8. ATRACURIUM [Suspect]
     Active Substance: ATRACURIUM
     Indication: INDUCTION OF ANAESTHESIA
     Dosage: PER BODY WEIGHT
     Route: 065
  9. OXYGEN. [Suspect]
     Active Substance: OXYGEN
     Indication: MAINTENANCE OF ANAESTHESIA
     Dosage: 33%
     Route: 055
  10. GLYCOPYRROLATE. [Suspect]
     Active Substance: GLYCOPYRROLATE
     Indication: PREMEDICATION
     Route: 042

REACTIONS (1)
  - Subcutaneous emphysema [Recovered/Resolved]
